FAERS Safety Report 8255707-5 (Version None)
Quarter: 2012Q2

REPORT INFORMATION
  Report Type: 
  Country: None (occurrence: None)
  Receive Date: 20120403
  Receipt Date: 20120403
  Transmission Date: 20120825
  Serious: No
  Sender: FDA-Public Use
  Company Number: None

PATIENT
  Age: 42 Year
  Sex: Female
  Weight: 70.306 kg

DRUGS (2)
  1. CARBOCAINE [Concomitant]
     Indication: ARTIFICIAL CROWN PROCEDURE
     Dosage: UNKNOWN
     Route: 004
     Dates: start: 20110811, end: 20110908
  2. SEPTOCAINE [Suspect]
     Indication: ENDODONTIC PROCEDURE
     Dosage: UNKNOWN
     Route: 004
     Dates: start: 20110811, end: 20110908

REACTIONS (3)
  - DYSGEUSIA [None]
  - AGEUSIA [None]
  - ANOSMIA [None]
